FAERS Safety Report 10157662 (Version 1)
Quarter: 2014Q2

REPORT INFORMATION
  Report Type: Spontaneous
  Country: TR (occurrence: TR)
  Receive Date: 20140507
  Receipt Date: 20140507
  Transmission Date: 20141212
  Serious: Yes (Death)
  Sender: FDA-Public Use
  Company Number: PHHY2014TR053531

PATIENT
  Age: 3 Year
  Sex: Male

DRUGS (6)
  1. DOXORUBICIN [Suspect]
     Indication: T-CELL TYPE ACUTE LEUKAEMIA
  2. VINCRISTINE [Suspect]
     Indication: T-CELL TYPE ACUTE LEUKAEMIA
  3. PREDNISOLONE [Suspect]
     Indication: T-CELL TYPE ACUTE LEUKAEMIA
  4. ETOPOSIDE [Suspect]
     Indication: T-CELL TYPE ACUTE LEUKAEMIA
  5. METHOTREXATE [Suspect]
     Indication: T-CELL TYPE ACUTE LEUKAEMIA
     Route: 037
  6. CYCLOPHOSPHAMIDE [Suspect]
     Indication: T-CELL TYPE ACUTE LEUKAEMIA

REACTIONS (1)
  - Sepsis [Fatal]
